FAERS Safety Report 20920922 (Version 5)
Quarter: 2023Q2

REPORT INFORMATION
  Report Type: Spontaneous
  Country: CA (occurrence: CA)
  Receive Date: 20220606
  Receipt Date: 20230609
  Transmission Date: 20230721
  Serious: Yes (Other)
  Sender: FDA-Public Use
  Company Number: CA-PFIZER INC-202200785512

PATIENT
  Age: 46 Year
  Sex: Male

DRUGS (2)
  1. ABRILADA [Suspect]
     Active Substance: ADALIMUMAB-AFZB
     Indication: Crohn^s disease
     Dosage: EVERY 2 WEEKS
     Route: 058
     Dates: start: 20220501
  2. HUMIRA [Suspect]
     Active Substance: ADALIMUMAB
     Dosage: UNK
     Dates: start: 20220529

REACTIONS (6)
  - Rectal haemorrhage [Unknown]
  - Arthralgia [Unknown]
  - Haemorrhoids [Unknown]
  - Peripheral swelling [Unknown]
  - Inflammation of lacrimal passage [Unknown]
  - Product substitution [Unknown]

NARRATIVE: CASE EVENT DATE: 20220501
